FAERS Safety Report 6701590-6 (Version None)
Quarter: 2010Q2

REPORT INFORMATION
  Report Type: 
  Country: None (occurrence: None)
  Receive Date: 20100429
  Receipt Date: 20100419
  Transmission Date: 20101027
  Serious: Yes (Other)
  Sender: FDA-Public Use
  Company Number: GB-ELI_LILLY_AND_COMPANY-GB201004005067

PATIENT
  Age: 48 Year
  Sex: Female

DRUGS (8)
  1. BYETTA [Suspect]
     Indication: TYPE 2 DIABETES MELLITUS
     Dosage: 5 UG, 2/D
     Route: 065
     Dates: start: 20100311, end: 20100328
  2. EZETIMIBE W/SIMVASTATIN [Concomitant]
     Dosage: UNK, UNKNOWN
     Route: 065
  3. FUROSEMIDE [Concomitant]
     Dosage: UNK, UNKNOWN
     Route: 065
  4. IRBESARTAN [Concomitant]
     Dosage: UNK, UNKNOWN
     Route: 065
  5. LANSOPRAZOLE [Concomitant]
     Dosage: UNK, UNKNOWN
     Route: 065
  6. METFORMIN [Concomitant]
     Dosage: UNK, UNKNOWN
     Route: 065
  7. PENTASA [Concomitant]
     Dosage: UNK, UNKNOWN
     Route: 065
  8. SITAGLIPTIN [Concomitant]
     Dosage: UNK, UNKNOWN
     Route: 065

REACTIONS (4)
  - DIARRHOEA [None]
  - HYPONATRAEMIA [None]
  - RENAL FAILURE ACUTE [None]
  - VOMITING [None]
